FAERS Safety Report 23019656 (Version 3)
Quarter: 2023Q4

REPORT INFORMATION
  Report Type: Report from Study
  Country: US (occurrence: US)
  Receive Date: 20231003
  Receipt Date: 20231027
  Transmission Date: 20240110
  Serious: Yes (Death, Hospitalization, Other)
  Sender: FDA-Public Use
  Company Number: US-GLAXOSMITHKLINE-US2023GSK124117

PATIENT

DRUGS (18)
  1. NIRAPARIB [Suspect]
     Active Substance: NIRAPARIB
     Indication: Endometrial neoplasm
     Dosage: 300 MG, Q21D
     Route: 048
     Dates: start: 20230810, end: 20230810
  2. NIRAPARIB [Suspect]
     Active Substance: NIRAPARIB
     Dosage: 200 MG
     Route: 048
     Dates: start: 20230915
  3. BACTRIM [Concomitant]
     Active Substance: SULFAMETHOXAZOLE\TRIMETHOPRIM
     Indication: Urinary tract infection
     Dosage: 800-160 MG QD 5 DAYS
     Route: 048
     Dates: start: 20230831
  4. BACTRIM [Concomitant]
     Active Substance: SULFAMETHOXAZOLE\TRIMETHOPRIM
     Indication: Haematuria
  5. LORATADINE [Concomitant]
     Active Substance: LORATADINE
     Indication: Rhinitis allergic
     Dosage: 10 MG, PRN
     Dates: start: 2023
  6. CHOLECALCIFEROL [Concomitant]
     Active Substance: CHOLECALCIFEROL
     Indication: Prophylaxis
     Dosage: 1000 DF, PRN
     Route: 048
     Dates: start: 20230314
  7. POTASSIUM CHLORIDE [Concomitant]
     Active Substance: POTASSIUM CHLORIDE
     Indication: Prophylaxis
     Dosage: 20 MG, PRN
     Route: 048
     Dates: start: 20220403
  8. MAGNESIUM SULFATE [Concomitant]
     Active Substance: MAGNESIUM SULFATE\MAGNESIUM SULFATE HEPTAHYDRATE
     Indication: Prophylaxis
     Dosage: 400 MG, PRN
     Route: 048
     Dates: start: 20221013
  9. SENNA LEAF [Concomitant]
     Active Substance: SENNA LEAF
     Indication: Prophylaxis
     Dosage: 2000 MG, PRN
     Route: 048
     Dates: start: 20230325
  10. TRAMADOL [Concomitant]
     Active Substance: TRAMADOL\TRAMADOL HYDROCHLORIDE
     Indication: Tumour pain
     Dosage: 50 MG, PRN
     Route: 048
     Dates: start: 20230314
  11. CITRUCEL [Concomitant]
     Active Substance: METHYLCELLULOSE (4000 CPS)\METHYLCELLULOSE (4000 MPA.S)
     Indication: Prophylaxis
     Dosage: 2 G, PRN
     Route: 048
     Dates: start: 20230401
  12. ONDANSETRON [Concomitant]
     Active Substance: ONDANSETRON
     Indication: Nausea
     Dosage: 8 MG, PRN
     Route: 048
     Dates: start: 20230413
  13. GABAPENTIN [Concomitant]
     Active Substance: GABAPENTIN
     Indication: Paraesthesia
     Dosage: 300 MG, TID
     Route: 048
     Dates: start: 20230503
  14. LEVOTHYROXINE [Concomitant]
     Active Substance: LEVOTHYROXINE
     Indication: Hypothyroidism
     Dosage: 75 MCG QD
     Dates: start: 20230708
  15. OXYCODONE [Concomitant]
     Active Substance: OXYCODONE
     Indication: Pain
     Dosage: 5 MG, PRN
     Route: 048
     Dates: start: 20230324
  16. TAMSULOSIN HYDROCHLORIDE [Concomitant]
     Active Substance: TAMSULOSIN HYDROCHLORIDE
     Indication: Prophylaxis
     Dosage: 0.4 MG, QD
     Route: 048
     Dates: start: 20230717
  17. IOPAMIDOL [Concomitant]
     Active Substance: IOPAMIDOL
     Indication: Product used for unknown indication
     Dosage: 100 ML, SINGLE
     Route: 042
     Dates: start: 20230919, end: 20230919
  18. CEFTRIAXONE [Concomitant]
     Active Substance: CEFTRIAXONE\CEFTRIAXONE SODIUM
     Indication: Product used for unknown indication
     Dosage: 1 G, SINGLE
     Route: 042
     Dates: start: 20230919, end: 20230919

REACTIONS (5)
  - Hypovolaemia [Fatal]
  - Dehydration [Recovered/Resolved]
  - Thrombocytopenia [Recovered/Resolved]
  - Dehydration [Not Recovered/Not Resolved]
  - Platelet count decreased [Recovered/Resolved]

NARRATIVE: CASE EVENT DATE: 20230904
